FAERS Safety Report 4434471-1 (Version None)
Quarter: 2004Q3

REPORT INFORMATION
  Report Type: 
  Country: None (occurrence: None)
  Receive Date: 20040726
  Receipt Date: 20040526
  Transmission Date: 20050211
  Serious: No
  Sender: FDA-Public Use
  Company Number: USA040259788

PATIENT
  Age: 72 Year
  Sex: Female

DRUGS (7)
  1. FORTEO [Suspect]
     Dates: start: 20031205
  2. CELEBREX [Concomitant]
  3. AMBIEN [Concomitant]
  4. DIAZEPAM [Concomitant]
  5. CELEXA [Concomitant]
  6. MECLIZINE [Concomitant]
  7. ALBUTEROL [Concomitant]

REACTIONS (1)
  - MUSCLE DISORDER [None]
